FAERS Safety Report 21233834 (Version 1)
Quarter: 2022Q3

REPORT INFORMATION
  Report Type: Spontaneous
  Country: BR (occurrence: BR)
  Receive Date: 20220819
  Receipt Date: 20220819
  Transmission Date: 20221027
  Serious: Yes (Other)
  Sender: FDA-Public Use
  Company Number: BR-BAYER-2022A112425

PATIENT
  Age: 29 Year
  Sex: Female

DRUGS (1)
  1. MIRENA [Suspect]
     Active Substance: LEVONORGESTREL
     Indication: Contraception
     Dosage: 20?G/DAY
     Route: 015
     Dates: start: 20160119

REACTIONS (31)
  - High risk pregnancy [Recovered/Resolved]
  - Pregnancy with contraceptive device [Recovered/Resolved]
  - Drug ineffective [None]
  - Haemorrhage in pregnancy [None]
  - Major depression [None]
  - Pre-eclampsia [None]
  - Malaise [None]
  - Mental disorder [None]
  - Device dislocation [None]
  - Ear injury [None]
  - Head injury [None]
  - Ovarian cyst [None]
  - Abulia [None]
  - Depressed mood [None]
  - Affect lability [None]
  - Insomnia [None]
  - Decreased appetite [None]
  - Asthenia [None]
  - Crying [None]
  - Generalised anxiety disorder [None]
  - Palpitations [None]
  - Anxiety [None]
  - Chest pain [None]
  - Anhedonia [None]
  - Implant site pain [None]
  - Erythema [None]
  - Facial spasm [None]
  - Dizziness [None]
  - Tinnitus [None]
  - Amenorrhoea [None]
  - Abdominal pain lower [None]

NARRATIVE: CASE EVENT DATE: 20160326
